FAERS Safety Report 4570622-6 (Version None)
Quarter: 2005Q1

REPORT INFORMATION
  Report Type: 
  Country: None (occurrence: None)
  Receive Date: 20050202
  Receipt Date: 20050202
  Transmission Date: 20050727
  Serious: Yes (Hospitalization)
  Sender: FDA-Public Use
  Company Number: None

PATIENT
  Age: 17 Year
  Sex: Male
  Weight: 65.9 kg

DRUGS (1)
  1. BROMOCRIPTINE   2.5MG   LEK [Suspect]
     Indication: MOVEMENT DISORDER
     Dosage: 40MG   TID   ORAL
     Route: 048
     Dates: start: 20041117, end: 20041117

REACTIONS (4)
  - COMA [None]
  - DIZZINESS [None]
  - LETHARGY [None]
  - MEDICATION ERROR [None]
